FAERS Safety Report 9174778 (Version 2)
Quarter: 2013Q1

REPORT INFORMATION
  Report Type: Spontaneous
  Country: US (occurrence: US)
  Receive Date: 20130320
  Receipt Date: 20130325
  Transmission Date: 20140127
  Serious: Yes (Other)
  Sender: FDA-Public Use
  Company Number: US-PFIZER INC-2013088836

PATIENT
  Age: 49 Year
  Sex: Female

DRUGS (2)
  1. SIROLIMUS [Suspect]
     Indication: IMMUNOSUPPRESSANT DRUG THERAPY
     Dosage: MAINTAINING SERUM LEVELS OF 12-15 NG/ML
  2. PREDNISONE [Concomitant]
     Dosage: UNK

REACTIONS (3)
  - Posterior reversible encephalopathy syndrome [Recovered/Resolved]
  - Transplant rejection [Recovered/Resolved]
  - Off label use [Unknown]
